FAERS Safety Report 15436756 (Version 1)
Quarter: 2018Q3

REPORT INFORMATION
  Report Type: Spontaneous
  Country: US (occurrence: US)
  Receive Date: 20180927
  Receipt Date: 20180927
  Transmission Date: 20181010
  Serious: Yes (Hospitalization, Other)
  Sender: FDA-Public Use
  Company Number: US-ACTELION-A-NJ2018-170764

PATIENT
  Age: 37 Year
  Sex: Male

DRUGS (14)
  1. FOLIC ACID. [Concomitant]
     Active Substance: FOLIC ACID
  2. DIGOXIN. [Concomitant]
     Active Substance: DIGOXIN
  3. WARFARIN [Concomitant]
     Active Substance: WARFARIN
  4. BACLOFEN. [Concomitant]
     Active Substance: BACLOFEN
  5. EPLERENONE. [Concomitant]
     Active Substance: EPLERENONE
  6. TORSEMIDE. [Concomitant]
     Active Substance: TORSEMIDE
  7. SILDENAFIL. [Concomitant]
     Active Substance: SILDENAFIL
     Dosage: 20 MG, TID
  8. KCL [Concomitant]
     Active Substance: POTASSIUM CHLORIDE
  9. SOTALOL. [Concomitant]
     Active Substance: SOTALOL
  10. OPSUMIT [Suspect]
     Active Substance: MACITENTAN
     Indication: PULMONARY ARTERIAL HYPERTENSION
     Dosage: 10 MG, QD
     Route: 048
     Dates: start: 20180112, end: 201803
  11. TREPROSTINIL SODIUM [Suspect]
     Active Substance: TREPROSTINIL SODIUM
     Indication: PULMONARY ARTERIAL HYPERTENSION
     Dosage: 54 MCG, QID
     Route: 055
     Dates: start: 20150130
  12. ALLOPURINOL. [Concomitant]
     Active Substance: ALLOPURINOL
  13. CHLOROTHIAZIDE. [Concomitant]
     Active Substance: CHLOROTHIAZIDE
  14. CLONAZEPAM. [Concomitant]
     Active Substance: CLONAZEPAM

REACTIONS (7)
  - Abdominal cavity drainage [Unknown]
  - Ascites [Unknown]
  - Abdominal distension [Not Recovered/Not Resolved]
  - Weight decreased [Unknown]
  - Cardiac failure [Unknown]
  - Hospitalisation [Unknown]
  - Fluid retention [Unknown]

NARRATIVE: CASE EVENT DATE: 201801
